FAERS Safety Report 9732073 (Version 1)
Quarter: 2013Q4

REPORT INFORMATION
  Report Type: Spontaneous
  Country: BR (occurrence: BR)
  Receive Date: 20131205
  Receipt Date: 20131205
  Transmission Date: 20140711
  Serious: Yes (Hospitalization, Other)
  Sender: FDA-Public Use
  Company Number: BR-ASTRAZENECA-2013SE87609

PATIENT
  Age: 25 Year
  Sex: Female
  Weight: 50 kg

DRUGS (25)
  1. OMEPRAZOLE [Suspect]
     Indication: ABDOMINAL PAIN UPPER
     Route: 048
     Dates: start: 2006, end: 2008
  2. OMEPRAZOLE [Suspect]
     Indication: ABDOMINAL PAIN UPPER
     Route: 048
     Dates: start: 2008
  3. SEROQUEL XR [Suspect]
     Indication: SCHIZOPHRENIA
     Route: 048
     Dates: start: 2011, end: 20131112
  4. SEROQUEL XR [Suspect]
     Indication: SCHIZOPHRENIA
     Route: 048
     Dates: start: 2011, end: 20131112
  5. SEROQUEL XR [Suspect]
     Indication: SCHIZOPHRENIA
     Dosage: QUETIAPINE HEMIFUMARATE (ACCORD MANUFACTURER)
     Route: 048
     Dates: start: 20131113, end: 20131116
  6. SEROQUEL XR [Suspect]
     Indication: SCHIZOPHRENIA
     Dosage: QUETIAPINE HEMIFUMARATE (ACCORD MANUFACTURER)
     Route: 048
     Dates: start: 20131117, end: 20131120
  7. SEROQUEL XR [Suspect]
     Indication: SCHIZOPHRENIA
     Route: 048
     Dates: start: 20131121, end: 20131122
  8. SEROQUEL XR [Suspect]
     Indication: SCHIZOPHRENIA
     Route: 048
     Dates: start: 20131125
  9. AZATHIOPRINE [Suspect]
     Indication: SYSTEMIC LUPUS ERYTHEMATOSUS
     Route: 048
     Dates: start: 2009, end: 2010
  10. PREDNISOLONE [Suspect]
     Indication: SYSTEMIC LUPUS ERYTHEMATOSUS
     Route: 048
     Dates: start: 2007, end: 201211
  11. PREDNISOLONE [Suspect]
     Indication: SYSTEMIC LUPUS ERYTHEMATOSUS
     Route: 048
     Dates: start: 201211
  12. FLUCONAZOLE [Suspect]
     Indication: ORAL CANDIDIASIS
     Dosage: ONCE A WEEK
     Route: 065
     Dates: start: 2012, end: 2012
  13. CALCIUM CARBONATE [Concomitant]
     Indication: MINERAL SUPPLEMENTATION
     Dosage: TWO TIMES A DAY
     Route: 048
     Dates: start: 2006
  14. CHLOROQUINE [Concomitant]
     Indication: SYSTEMIC LUPUS ERYTHEMATOSUS
     Route: 048
     Dates: start: 2006
  15. MYCOPHENOLATE MOFETIL [Concomitant]
     Indication: SYSTEMIC LUPUS ERYTHEMATOSUS
     Dosage: FOUR TIMES A DAY
     Route: 048
     Dates: start: 2010
  16. LEXAPRO [Concomitant]
     Indication: DEPRESSION
     Route: 048
     Dates: start: 2009, end: 2011
  17. VENLAFAXINE HYDROCHLORIDE [Concomitant]
     Indication: DEPRESSION
     Route: 048
     Dates: start: 2011
  18. AMYTIRIL [Concomitant]
     Indication: HEADACHE
     Route: 048
     Dates: start: 2007
  19. TOPIRAMATE [Concomitant]
     Indication: CONVULSION
     Route: 048
     Dates: start: 2009
  20. CLOBAZAM [Concomitant]
     Indication: CONVULSION
     Dosage: DAILY
     Route: 048
     Dates: start: 2009
  21. MAREVAN [Concomitant]
     Indication: ANTIPHOSPHOLIPID SYNDROME
     Route: 048
     Dates: start: 2010
  22. TRAZODONE [Concomitant]
     Indication: INSOMNIA
     Route: 048
     Dates: start: 201211
  23. FLURAZEPAM [Concomitant]
     Indication: INSOMNIA
     Route: 048
     Dates: start: 201211
  24. DAKTARIN GEL ORAL [Concomitant]
     Indication: ORAL CANDIDIASIS
     Dosage: DAILY
     Route: 061
     Dates: start: 2012
  25. ALENDRONATE SODIUM [Concomitant]
     Indication: BLOOD CALCIUM DECREASED
     Route: 048
     Dates: start: 2008

REACTIONS (25)
  - Convulsion [Recovered/Resolved]
  - Hypoxic-ischaemic encephalopathy [Recovered/Resolved]
  - Renal disorder [Recovered/Resolved]
  - Antiphospholipid syndrome [Recovered/Resolved]
  - Systemic lupus erythematosus [Recovered/Resolved]
  - Osteonecrosis [Recovered/Resolved]
  - Schizophrenia [Recovered/Resolved]
  - Blood calcium decreased [Recovered/Resolved]
  - Decreased appetite [Recovered/Resolved]
  - Speech disorder [Recovered/Resolved]
  - Gait disturbance [Not Recovered/Not Resolved]
  - Memory impairment [Recovered/Resolved]
  - Salivary hypersecretion [Recovered/Resolved]
  - Impaired reasoning [Recovered/Resolved]
  - Hypotension [Recovered/Resolved]
  - Oral candidiasis [Recovered/Resolved]
  - Depression [Recovered/Resolved]
  - Erythema [Recovered/Resolved]
  - Lip swelling [Recovered/Resolved]
  - Insomnia [Recovered/Resolved]
  - Somnolence [Not Recovered/Not Resolved]
  - Dizziness [Recovered/Resolved]
  - Headache [Not Recovered/Not Resolved]
  - Abdominal pain upper [Recovered/Resolved]
  - Drug dose omission [Recovered/Resolved]
